FAERS Safety Report 11213121 (Version 2)
Quarter: 2015Q3

REPORT INFORMATION
  Report Type: Report from Study
  Country: GB (occurrence: GB)
  Receive Date: 20150623
  Receipt Date: 20150721
  Transmission Date: 20151125
  Serious: Yes (Death, Congenital Anomaly, Other)
  Sender: FDA-Public Use
  Company Number: GB-ABBVIE-15P-167-1412851-00

PATIENT

DRUGS (3)
  1. TRUVADA [Suspect]
     Active Substance: EMTRICITABINE\TENOFOVIR DISOPROXIL FUMARATE
     Indication: MATERNAL EXPOSURE TIMING UNSPECIFIED
     Route: 064
  2. DARUNAVIR [Suspect]
     Active Substance: DARUNAVIR
     Indication: MATERNAL EXPOSURE TIMING UNSPECIFIED
     Route: 064
  3. NORVIR [Suspect]
     Active Substance: RITONAVIR
     Indication: MATERNAL EXPOSURE TIMING UNSPECIFIED
     Route: 064

REACTIONS (11)
  - Placental disorder [Not Recovered/Not Resolved]
  - Amniotic band syndrome [Not Recovered/Not Resolved]
  - Foetal growth restriction [Not Recovered/Not Resolved]
  - Neonatal aspiration [Fatal]
  - Premature baby [Fatal]
  - Stillbirth [Fatal]
  - Limb malformation [Not Recovered/Not Resolved]
  - Syndactyly [Not Recovered/Not Resolved]
  - Umbilical cord abnormality [Not Recovered/Not Resolved]
  - Foetal exposure during pregnancy [Unknown]
  - Talipes [Not Recovered/Not Resolved]

NARRATIVE: CASE EVENT DATE: 201503
